FAERS Safety Report 6688002-6 (Version None)
Quarter: 2010Q2

REPORT INFORMATION
  Report Type: 
  Country: None (occurrence: None)
  Receive Date: 20100420
  Receipt Date: 20100416
  Transmission Date: 20101027
  Serious: Yes (Hospitalization)
  Sender: FDA-Public Use
  Company Number: US-BRISTOL-MYERS SQUIBB COMPANY-15066855

PATIENT

DRUGS (1)
  1. ERBITUX [Suspect]
     Dosage: DOSAGE:100MG 1 VIAL ,50ML 2 VIALS.

REACTIONS (1)
  - CHEST PAIN [None]
